FAERS Safety Report 6604335-3 (Version None)
Quarter: 2010Q1

REPORT INFORMATION
  Report Type: 
  Country: None (occurrence: None)
  Receive Date: 20100226
  Receipt Date: 20090825
  Transmission Date: 20100710
  Serious: No
  Sender: FDA-Public Use
  Company Number: A0804059A

PATIENT
  Age: 55 Year
  Sex: Female

DRUGS (4)
  1. LAMICTAL CD [Suspect]
     Indication: BIPOLAR DISORDER
     Dosage: 400MG PER DAY
     Route: 048
     Dates: start: 20050101, end: 20090818
  2. NEXIUM [Concomitant]
  3. METFORMIN HYDROCHLORIDE [Concomitant]
     Dates: end: 20090701
  4. DESYREL [Concomitant]

REACTIONS (1)
  - RASH [None]
